FAERS Safety Report 7655404-0 (Version None)
Quarter: 2011Q3

REPORT INFORMATION
  Report Type: 
  Country: None (occurrence: None)
  Receive Date: 20110804
  Receipt Date: 20110721
  Transmission Date: 20111222
  Serious: Yes (Hospitalization)
  Sender: FDA-Public Use
  Company Number: US-NOVEN-11US002827

PATIENT
  Age: 24 Year
  Sex: Female

DRUGS (3)
  1. FENTANYL [Suspect]
     Dosage: 25 UG, Q72H
     Route: 062
     Dates: start: 20110708, end: 20110701
  2. FENTANYL [Suspect]
     Dosage: 50 UG, Q72H
     Route: 062
     Dates: start: 20110701, end: 20110701
  3. FENTANYL [Suspect]
     Indication: PRODUCT USED FOR UNKNOWN INDICATION
     Dosage: UNK

REACTIONS (1)
  - MALAISE [None]
